FAERS Safety Report 5654760-2 (Version None)
Quarter: 2008Q1

REPORT INFORMATION
  Report Type: 
  Country: None (occurrence: None)
  Receive Date: 20080307
  Receipt Date: 20080124
  Transmission Date: 20080703
  Serious: No
  Sender: FDA-Public Use
  Company Number: A0594457A

PATIENT
  Age: 55 Year
  Sex: Male

DRUGS (11)
  1. REQUIP [Suspect]
     Indication: PARKINSON'S DISEASE
     Dosage: 4MG THREE TIMES PER DAY
     Route: 048
     Dates: start: 20040901, end: 20060206
  2. MIRAPEX [Suspect]
     Indication: PARKINSON'S DISEASE
     Route: 048
  3. AMANTADINE HCL [Concomitant]
  4. PROVIGIL [Concomitant]
  5. ZESTRIL [Concomitant]
  6. SINEMET [Concomitant]
  7. AMBIEN [Concomitant]
  8. LEVITRA [Concomitant]
  9. VIAGRA [Concomitant]
  10. ANDROGEL [Concomitant]
  11. ASTELIN [Concomitant]
     Route: 045

REACTIONS (2)
  - INSOMNIA [None]
  - PATHOLOGICAL GAMBLING [None]
